FAERS Safety Report 10195373 (Version 1)
Quarter: 2014Q2

REPORT INFORMATION
  Report Type: Report from Study
  Country: US (occurrence: US)
  Receive Date: 20140526
  Receipt Date: 20140526
  Transmission Date: 20141212
  Serious: Yes (Hospitalization)
  Sender: FDA-Public Use
  Company Number: PHEH2014US010380

PATIENT
  Age: 27 Year
  Sex: Male

DRUGS (2)
  1. TOBI [Suspect]
     Indication: CYSTIC FIBROSIS
     Dosage: 300 MG/5ML, TWICE A DAY
     Route: 055
  2. TOBI PODHALER [Suspect]
     Indication: CYSTIC FIBROSIS
     Dosage: 112 MG, TWICE A DAY
     Route: 055

REACTIONS (2)
  - Condition aggravated [Not Recovered/Not Resolved]
  - Cystic fibrosis [Not Recovered/Not Resolved]
